FAERS Safety Report 20430657 (Version 1)
Quarter: 2022Q1

REPORT INFORMATION
  Report Type: Report from Study
  Country: FR (occurrence: FR)
  Receive Date: 20220204
  Receipt Date: 20220204
  Transmission Date: 20220423
  Serious: Yes (Hospitalization)
  Sender: FDA-Public Use
  Company Number: FR-SERVIER-S20013654

PATIENT

DRUGS (8)
  1. PEGASPARGASE [Suspect]
     Active Substance: PEGASPARGASE
     Indication: Acute lymphocytic leukaemia
     Dosage: 697.5 IU ON D12 AND D26
     Route: 042
     Dates: start: 20200428, end: 20200512
  2. TN UNSPECIFIED [Concomitant]
     Indication: Acute lymphocytic leukaemia
     Dosage: 0.8 MG ON D8, D15, D22, AND D29
     Route: 042
     Dates: start: 20200424, end: 20200515
  3. TN UNSPECIFIED [Concomitant]
     Indication: Acute lymphocytic leukaemia
     Dosage: 17 MG ON D8, D15, D22, AND D29
     Route: 042
     Dates: start: 20200424, end: 20200515
  4. TN UNSPECIFIED [Concomitant]
     Indication: Acute lymphocytic leukaemia
     Dosage: 10 MG ON D13 AND D24
     Route: 037
     Dates: start: 20200418, end: 20200512
  5. TN UNSPECIFIED [Concomitant]
     Indication: Acute lymphocytic leukaemia
     Dosage: 25 MG ON D13 AND D24
     Route: 037
     Dates: start: 20200418, end: 20200512
  6. TN UNSPECIFIED [Concomitant]
     Indication: Acute lymphocytic leukaemia
     Dosage: 12 MG ON D13 AND D24
     Route: 037
     Dates: start: 20200418, end: 20200512
  7. TN UNSPECIFIED [Concomitant]
     Indication: Acute lymphocytic leukaemia
     Dosage: 36 MG ON D1 TO D7
     Route: 042
     Dates: start: 20200417, end: 20200423
  8. TN UNSPECIFIED [Concomitant]
     Dosage: 34 MG ON D8 TO D28
     Route: 042
     Dates: start: 20200424, end: 20200514

REACTIONS (1)
  - Lung disorder [Not Recovered/Not Resolved]

NARRATIVE: CASE EVENT DATE: 20200529
